FAERS Safety Report 5144613-0 (Version None)
Quarter: 2006Q4

REPORT INFORMATION
  Report Type: 
  Country: None (occurrence: None)
  Receive Date: 20061106
  Receipt Date: 20061027
  Transmission Date: 20070319
  Serious: Yes (Life-Threatening, Hospitalization)
  Sender: FDA-Public Use
  Company Number: FR-MERCK-0610FRA00071

PATIENT
  Age: 24 Year
  Sex: Male

DRUGS (4)
  1. PROPECIA [Suspect]
     Indication: ALOPECIA
     Route: 048
     Dates: start: 20040101, end: 20060101
  2. PROPECIA [Suspect]
     Route: 048
     Dates: start: 20061014, end: 20061014
  3. MAGNESIUM LACTATE AND PYRIDOXINE HYDROCHLORIDE [Concomitant]
     Route: 048
  4. COCAINE [Suspect]
     Indication: DEPENDENCE
     Route: 055

REACTIONS (2)
  - CARDIAC ARREST [None]
  - MALAISE [None]
